FAERS Safety Report 9126942 (Version 1)
Quarter: 2013Q1

REPORT INFORMATION
  Report Type: Spontaneous
  Country: US (occurrence: US)
  Receive Date: 20130122
  Receipt Date: 20130122
  Transmission Date: 20140127
  Serious: Yes (Hospitalization)
  Sender: FDA-Public Use
  Company Number: US-GLAXOSMITHKLINE-A0815531A

PATIENT
  Sex: Male

DRUGS (2)
  1. AVANDIA [Suspect]
     Indication: DIABETES MELLITUS
     Dosage: 2MG TWICE PER DAY
     Route: 048
  2. AVANDAMET [Suspect]
     Indication: DIABETES MELLITUS
     Route: 048

REACTIONS (13)
  - Cardiovascular disorder [Not Recovered/Not Resolved]
  - Arthropathy [Unknown]
  - Visual impairment [Unknown]
  - Hypertension [Unknown]
  - Chest pain [Unknown]
  - Gastric ulcer [Unknown]
  - Abdominal pain upper [Unknown]
  - Nausea [Unknown]
  - Vomiting [Unknown]
  - Peripheral vascular disorder [Unknown]
  - Coronary artery disease [Unknown]
  - Palpitations [Unknown]
  - Gastrooesophageal reflux disease [Unknown]
